FAERS Safety Report 4778723-4 (Version None)
Quarter: 2005Q3

REPORT INFORMATION
  Report Type: 
  Country: None (occurrence: None)
  Receive Date: 20050922
  Receipt Date: 20050912
  Transmission Date: 20060218
  Serious: Yes (Hospitalization)
  Sender: FDA-Public Use
  Company Number: 2005126524

PATIENT
  Age: 89 Year
  Sex: Female

DRUGS (4)
  1. PREGABALIN (PREGABALIN) [Suspect]
     Indication: POST HERPETIC NEURALGIA
     Dosage: 300 MG (150 MG, 2 IN 1 D), ORAL
     Route: 048
  2. RAMIPRIL [Concomitant]
  3. TORSEMIDE [Concomitant]
  4. OMEPRAZOLE [Concomitant]

REACTIONS (5)
  - ACTIVITIES OF DAILY LIVING IMPAIRED [None]
  - ASTERIXIS [None]
  - DIFFICULTY IN WALKING [None]
  - DYSSTASIA [None]
  - FALL [None]
